FAERS Safety Report 12526994 (Version 2)
Quarter: 2016Q4

REPORT INFORMATION
  Report Type: Spontaneous
  Country: US (occurrence: US)
  Receive Date: 20160705
  Receipt Date: 20161114
  Transmission Date: 20170207
  Serious: No
  Sender: FDA-Public Use
  Company Number: US-GLAXOSMITHKLINE-US2016GSK093720

PATIENT
  Age: 19 Year
  Sex: Female

DRUGS (1)
  1. CAMBIA [Suspect]
     Active Substance: DICLOFENAC POTASSIUM
     Indication: MIGRAINE
     Dosage: 50 MG, UNK, DISSOLVE CONTENTS OF 1 PACKET IN 1 TO 2 OUNCES OF WATER.DRINK IMMEDIATELY AS SINGLE DOSE
     Route: 048
     Dates: start: 20160304, end: 20160601

REACTIONS (1)
  - Drug ineffective [Unknown]
